FAERS Safety Report 4314635-8 (Version None)
Quarter: 2004Q1

REPORT INFORMATION
  Report Type: 
  Country: None (occurrence: None)
  Receive Date: 20040308
  Receipt Date: 20040220
  Transmission Date: 20041129
  Serious: Yes (Hospitalization)
  Sender: FDA-Public Use
  Company Number: DSA_24026_2004

PATIENT
  Age: 80 Year
  Sex: Male

DRUGS (7)
  1. ENALAPRIL MALEATE AND HYDROCHLOROTHIAZIDE [Suspect]
     Indication: HYPERTENSION
     Dosage: 1 TAB QD PO
     Route: 048
     Dates: end: 20040204
  2. ATENOLOL + NIFEDIPINE [Suspect]
     Indication: HYPERTENSION
     Dates: end: 20040205
  3. RILMENIDINE PHOSPHATE [Suspect]
     Indication: HYPERTENSION
     Dosage: 1 MG Q DAY PO
     Route: 048
     Dates: end: 20040203
  4. FLUINDIONE [Concomitant]
  5. CITALOPRAM HYDROBROMIDE [Concomitant]
  6. ACETAMINOPHEN [Concomitant]
  7. OXYBUTYNIN CHLORIDE [Concomitant]

REACTIONS (6)
  - CEREBRAL ATROPHY [None]
  - DIZZINESS [None]
  - FALL [None]
  - HEAD INJURY [None]
  - ORTHOSTATIC HYPOTENSION [None]
  - VENTRICULAR HYPERTROPHY [None]
